FAERS Safety Report 20461145 (Version 2)
Quarter: 2022Q1

REPORT INFORMATION
  Report Type: Report from Study
  Country: IN (occurrence: IN)
  Receive Date: 20220211
  Receipt Date: 20220302
  Transmission Date: 20220423
  Serious: Yes (Death, Other)
  Sender: FDA-Public Use
  Company Number: IN-BRISTOL-MYERS SQUIBB COMPANY-BMS-2022-019929

PATIENT
  Age: 25 Year
  Sex: Male
  Weight: 72 kg

DRUGS (1)
  1. NIVOLUMAB [Suspect]
     Active Substance: NIVOLUMAB
     Indication: Hodgkin^s disease
     Dosage: 216 MILLIGRAM, Q2WK
     Route: 042
     Dates: start: 20190531

REACTIONS (1)
  - Death [Fatal]

NARRATIVE: CASE EVENT DATE: 20220125
